FAERS Safety Report 7398968-7 (Version None)
Quarter: 2011Q2

REPORT INFORMATION
  Report Type: 
  Country: None (occurrence: None)
  Receive Date: 20110407
  Receipt Date: 20110330
  Transmission Date: 20111010
  Serious: Yes (Other)
  Sender: FDA-Public Use
  Company Number: GB-AMGEN-GBRSP2011017221

PATIENT
  Age: 51 Year
  Sex: Female

DRUGS (5)
  1. CYCLOPHOSPHAMIDE [Concomitant]
  2. NEUPOGEN [Suspect]
     Indication: CHEMOTHERAPY
     Dosage: UNK
     Dates: start: 20110326
  3. EPIRUBICIN [Concomitant]
  4. TAXOTERE [Concomitant]
  5. FLUOROURACIL                       /00098802/ [Concomitant]
     Dosage: UNK

REACTIONS (1)
  - ASTHMA [None]
